FAERS Safety Report 7628311-7 (Version None)
Quarter: 2011Q3

REPORT INFORMATION
  Report Type: 
  Country: None (occurrence: None)
  Receive Date: 20110714
  Receipt Date: 20110702
  Transmission Date: 20111222
  Serious: Yes (Hospitalization)
  Sender: FDA-Public Use
  Company Number: 2011PV000038

PATIENT
  Age: 65 Year
  Sex: Female
  Weight: 62 kg

DRUGS (14)
  1. PANTOPRAZOLE SODIUM [Concomitant]
  2. DEPOCYT [Suspect]
     Indication: METASTASES TO MENINGES
     Dosage: 50 MG, 1X, INTH
     Route: 037
     Dates: start: 20110606
  3. NOLVADEX [Concomitant]
  4. CAL D VITA [Concomitant]
  5. IBANDRONATE SODIUM [Concomitant]
  6. BETAISODONA [Concomitant]
  7. PROCHLORPERAZINE [Concomitant]
  8. DEXAMETHASONE [Concomitant]
  9. TRISIUM [Concomitant]
  10. KEPPRA [Concomitant]
  11. MYCOSTATIN [Concomitant]
  12. BANEOCIN [Concomitant]
  13. PEN-V [Concomitant]
  14. TEMODAL [Concomitant]

REACTIONS (2)
  - INFECTED SKIN ULCER [None]
  - DIABETIC FOOT [None]
